FAERS Safety Report 15204276 (Version 1)
Quarter: 2018Q3

REPORT INFORMATION
  Report Type: Spontaneous
  Country: US (occurrence: US)
  Receive Date: 20180628
  Receipt Date: 20180628
  Transmission Date: 20181010
  Serious: No
  Sender: FDA-Public Use
  Company Number: None

PATIENT
  Age: 70 Year

DRUGS (1)
  1. VANCOMYCIN 1.5GMS FRESENIUS KABI [Suspect]
     Active Substance: VANCOMYCIN
     Indication: OSTEOMYELITIS
     Route: 042
     Dates: start: 20180528

REACTIONS (1)
  - Rash [None]

NARRATIVE: CASE EVENT DATE: 20180626
